FAERS Safety Report 10017471 (Version 3)
Quarter: 2015Q1

REPORT INFORMATION
  Report Type: Report from Study
  Country: US (occurrence: US)
  Receive Date: 20140318
  Receipt Date: 20150326
  Transmission Date: 20150720
  Serious: Yes (Death)
  Sender: FDA-Public Use
  Company Number: US-ROCHE-1365356

PATIENT
  Age: 73 Year
  Sex: Male

DRUGS (6)
  1. PLAVIX [Concomitant]
     Active Substance: CLOPIDOGREL BISULFATE
     Route: 048
  2. GLIPIZIDE. [Concomitant]
     Active Substance: GLIPIZIDE
     Indication: DIABETES MELLITUS
     Route: 048
  3. LUCENTIS [Suspect]
     Active Substance: RANIBIZUMAB
     Indication: DIABETIC RETINAL OEDEMA
  4. METFORMIN [Concomitant]
     Active Substance: METFORMIN HYDROCHLORIDE
     Indication: DIABETES MELLITUS
     Route: 048
  5. LUCENTIS [Suspect]
     Active Substance: RANIBIZUMAB
     Indication: DIABETIC RETINOPATHY
     Dosage: BOTH EYES
     Route: 050
     Dates: start: 20090805
  6. COUMADINE [Concomitant]
     Active Substance: WARFARIN SODIUM
     Route: 048

REACTIONS (4)
  - Cardiac arrest [Fatal]
  - Oesophageal haemorrhage [Fatal]
  - Haemoglobin decreased [Fatal]
  - Ejection fraction decreased [Fatal]

NARRATIVE: CASE EVENT DATE: 20140227
